FAERS Safety Report 9398558 (Version 2)
Quarter: 2013Q3

REPORT INFORMATION
  Report Type: Spontaneous
  Country: US (occurrence: US)
  Receive Date: 20130712
  Receipt Date: 20130813
  Transmission Date: 20140515
  Serious: Yes (Other)
  Sender: FDA-Public Use
  Company Number: US-TEVA-418521USA

PATIENT
  Sex: Female

DRUGS (2)
  1. PARAGARD 380A [Suspect]
     Indication: CONTRACEPTION
     Route: 015
     Dates: start: 20130619, end: 20130710
  2. NORTRIPTYLINE [Concomitant]

REACTIONS (3)
  - Device dislocation [Recovered/Resolved]
  - Abdominal pain upper [Recovered/Resolved]
  - Pelvic pain [Recovered/Resolved]
